FAERS Safety Report 4367511-9 (Version None)
Quarter: 2004Q2

REPORT INFORMATION
  Report Type: 
  Country: None (occurrence: None)
  Receive Date: 20040517
  Receipt Date: 20040428
  Transmission Date: 20050107
  Serious: Yes (Death)
  Sender: FDA-Public Use
  Company Number: 236635

PATIENT
  Age: 45 Year
  Sex: Male

DRUGS (1)
  1. NOVOSEVEN(EPTACOG ELFA (ACTIVATED)) POWDER FOR INJECTION, 1.2MG [Suspect]
     Indication: UPPER GASTROINTESTINAL HAEMORRHAGE
     Dosage: 4.8 MG IN TOTAL, INTRAVENOUS
     Route: 042

REACTIONS (1)
  - HAEMODYNAMIC INSTABILITY [None]
